FAERS Safety Report 12565899 (Version 1)
Quarter: 2016Q3

REPORT INFORMATION
  Report Type: Spontaneous
  Country: IT (occurrence: IT)
  Receive Date: 20160718
  Receipt Date: 20160718
  Transmission Date: 20161109
  Serious: Yes (Other)
  Sender: FDA-Public Use
  Company Number: IT-TEVA-676057ACC

PATIENT
  Age: 76 Year
  Sex: Female

DRUGS (6)
  1. BIOCHETASI - GRANULATO EFFERVESCENTE [Concomitant]
     Indication: VOMITING
     Dosage: 1 DF
     Dates: start: 20150131, end: 20150203
  2. AMOXICILLIN PLUS CLAVULANIC ACID [Interacting]
     Active Substance: AMOXICILLIN\CLAVULANIC ACID
     Indication: ANTIBIOTIC PROPHYLAXIS
     Dosage: 2 GRAM DAILY;
     Route: 048
     Dates: start: 20150121, end: 20150126
  3. OMEPRAZEN - 20 MG CAPSULE RIGIDE GASTRORESISTENTI [Concomitant]
     Indication: ABDOMINAL PAIN UPPER
     Dosage: 1 DF
     Route: 048
     Dates: start: 20150131, end: 20150209
  4. SIMVASTATIN. [Suspect]
     Active Substance: SIMVASTATIN
     Indication: PRODUCT USED FOR UNKNOWN INDICATION
     Dosage: 10 MILLIGRAM DAILY;
     Route: 048
  5. METFORMINA TEVA - 300 CPR RIVESTITE [Concomitant]
     Indication: PRODUCT USED FOR UNKNOWN INDICATION
     Dosage: 1 DF
     Route: 048
  6. DEBRIDAT - 150 MG CAPSULE MOLLI [Concomitant]
     Indication: PRODUCT USED FOR UNKNOWN INDICATION
     Dosage: 2 DF
     Route: 048
     Dates: start: 20150131, end: 20150209

REACTIONS (3)
  - Drug interaction [Unknown]
  - Jaundice [Recovered/Resolved]
  - Pruritus [Recovered/Resolved]

NARRATIVE: CASE EVENT DATE: 20150208
